FAERS Safety Report 20629320 (Version 1)
Quarter: 2022Q1

REPORT INFORMATION
  Report Type: Spontaneous
  Country: US (occurrence: US)
  Receive Date: 20220323
  Receipt Date: 20220323
  Transmission Date: 20220423
  Serious: Yes (Other)
  Sender: FDA-Public Use
  Company Number: US-GLAXOSMITHKLINE-US2022GSK052675

PATIENT
  Sex: Male

DRUGS (2)
  1. RANITIDINE [Suspect]
     Active Substance: RANITIDINE
     Indication: Barrett^s oesophagus
     Dosage: 150 MG, QD
     Route: 065
     Dates: start: 200005, end: 201912
  2. RANITIDINE [Suspect]
     Active Substance: RANITIDINE
     Indication: Barrett^s oesophagus
     Dosage: 150 MG, QD
     Route: 065
     Dates: start: 200005, end: 201912

REACTIONS (2)
  - Oesophageal carcinoma [Unknown]
  - Gastric cancer [Unknown]
